FAERS Safety Report 23804039 (Version 7)
Quarter: 2025Q1

REPORT INFORMATION
  Report Type: Spontaneous
  Country: US (occurrence: US)
  Receive Date: 20240501
  Receipt Date: 20250108
  Transmission Date: 20250408
  Serious: Yes (Hospitalization, Other)
  Sender: CSL BEHRING
  Company Number: US-BEH-2024171239

PATIENT
  Age: 51 Year
  Sex: Male
  Weight: 100.68 kg

DRUGS (9)
  1. BERINERT [Suspect]
     Active Substance: HUMAN C1-ESTERASE INHIBITOR
     Indication: Hereditary angioedema
     Route: 042
     Dates: start: 202010
  2. BERINERT [Suspect]
     Active Substance: HUMAN C1-ESTERASE INHIBITOR
     Indication: Hereditary angioedema
     Route: 042
     Dates: start: 202010
  3. BERINERT [Suspect]
     Active Substance: HUMAN C1-ESTERASE INHIBITOR
     Indication: Hereditary angioedema
     Route: 065
  4. BERINERT [Suspect]
     Active Substance: HUMAN C1-ESTERASE INHIBITOR
     Indication: Hereditary angioedema
     Route: 065
  5. BERINERT [Suspect]
     Active Substance: HUMAN C1-ESTERASE INHIBITOR
     Indication: Hereditary angioedema
     Route: 065
  6. BERINERT [Suspect]
     Active Substance: HUMAN C1-ESTERASE INHIBITOR
     Indication: Hereditary angioedema
     Route: 065
  7. BERINERT [Suspect]
     Active Substance: HUMAN C1-ESTERASE INHIBITOR
     Route: 065
  8. BERINERT [Suspect]
     Active Substance: HUMAN C1-ESTERASE INHIBITOR
     Route: 065
  9. TAKHZYRO [Concomitant]
     Active Substance: LANADELUMAB-FLYO
     Route: 065

REACTIONS (16)
  - Viral infection [Unknown]
  - Infection [Unknown]
  - Weight decreased [Unknown]
  - Drug ineffective [Unknown]
  - Hereditary angioedema [Unknown]
  - Fall [Unknown]
  - Quadriplegia [Unknown]
  - Pneumonia [Unknown]
  - Hereditary angioedema [Unknown]
  - Weight increased [Unknown]
  - Weight decreased [Unknown]
  - Stress [Unknown]
  - Weight decreased [Unknown]
  - Weight decreased [Unknown]
  - Dyspnoea [Unknown]
  - Constipation [Unknown]

NARRATIVE: CASE EVENT DATE: 20240405
